FAERS Safety Report 21206435 (Version 1)
Quarter: 2022Q3

REPORT INFORMATION
  Report Type: Spontaneous
  Country: CH (occurrence: CH)
  Receive Date: 20220812
  Receipt Date: 20220812
  Transmission Date: 20221027
  Serious: Yes (Life-Threatening, Hospitalization, Other)
  Sender: FDA-Public Use
  Company Number: None

PATIENT
  Age: 58 Year
  Sex: Male

DRUGS (8)
  1. ETOPOSIDE PHOSPHATE [Suspect]
     Active Substance: ETOPOSIDE PHOSPHATE
     Indication: Testicular germ cell tumour mixed
     Route: 042
     Dates: start: 20210925, end: 20210929
  2. BLEOMYCIN [Suspect]
     Active Substance: BLEOMYCIN SULFATE
     Indication: Testicular germ cell tumour mixed
     Route: 042
     Dates: start: 20210817, end: 20210817
  3. ETOPOSIDE [Suspect]
     Active Substance: ETOPOSIDE
     Indication: Testicular germ cell tumour mixed
     Route: 042
     Dates: start: 20210817, end: 20210821
  4. CISPLATIN [Suspect]
     Active Substance: CISPLATIN
     Indication: Testicular germ cell tumour mixed
     Route: 042
     Dates: start: 20210817, end: 20210821
  5. CISPLATIN [Suspect]
     Active Substance: CISPLATIN
     Indication: Testicular germ cell tumour mixed
     Route: 042
     Dates: start: 20210925, end: 20210929
  6. PREGABALIN [Concomitant]
     Active Substance: PREGABALIN
  7. METOCLOPRAMIDE [Concomitant]
     Active Substance: METOCLOPRAMIDE
     Dosage: AS NECESSARY
  8. ONDANSETRON [Concomitant]
     Active Substance: ONDANSETRON
     Dosage: AS NECESSARY

REACTIONS (8)
  - Agranulocytosis [Recovered/Resolved]
  - Agranulocytosis [Recovered/Resolved]
  - Septic shock [Recovered/Resolved]
  - Neutropenic colitis [Recovered/Resolved]
  - Thrombocytopenia [Recovered/Resolved]
  - Thrombocytopenia [Recovered/Resolved]
  - Anaemia [Not Recovered/Not Resolved]
  - Proctitis bacterial [Recovered/Resolved]

NARRATIVE: CASE EVENT DATE: 20210801
